FAERS Safety Report 9912932 (Version 1)
Quarter: 2014Q1

REPORT INFORMATION
  Report Type: Spontaneous
  Country: US (occurrence: US)
  Receive Date: 20140220
  Receipt Date: 20140220
  Transmission Date: 20141002
  Serious: Yes (Other)
  Sender: FDA-Public Use
  Company Number: US-SA-2014SA020993

PATIENT
  Sex: Female

DRUGS (2)
  1. CEREZYME [Suspect]
     Indication: GAUCHER^S DISEASE
     Dosage: ALTERNATE 6000 UNITS WITH 6400 UNITS DOSE:6000 UNIT(S)
     Route: 042
     Dates: start: 20120322
  2. CEREZYME [Suspect]
     Indication: GAUCHER^S DISEASE
     Dosage: ALTERNATE 6000 UNITS WITH 6400 UNITS DOSE:6400 UNIT(S)
     Route: 042
     Dates: start: 20120322

REACTIONS (1)
  - Ovarian cyst [Unknown]
